FAERS Safety Report 14878247 (Version 1)
Quarter: 2018Q2

REPORT INFORMATION
  Report Type: Spontaneous
  Country: FR (occurrence: FR)
  Receive Date: 20180510
  Receipt Date: 20180510
  Transmission Date: 20180711
  Serious: Yes (Other)
  Sender: FDA-Public Use
  Company Number: FR-MERCK KGAA-2047592

PATIENT
  Age: 59 Year
  Sex: Female

DRUGS (2)
  1. NOVOTHYROX [Suspect]
     Active Substance: LEVOTHYROXINE SODIUM
     Indication: PRODUCT USED FOR UNKNOWN INDICATION
  2. LEVOTHYROX NF [Suspect]
     Active Substance: LEVOTHYROXINE SODIUM
     Dates: start: 20170830, end: 20170918

REACTIONS (16)
  - Dizziness [None]
  - Social avoidant behaviour [None]
  - Feeling jittery [None]
  - Hyperhidrosis [None]
  - Alopecia [None]
  - Blood pressure decreased [None]
  - Blood thyroid stimulating hormone increased [Recovered/Resolved]
  - Depression [None]
  - Sleep disorder [None]
  - Decreased activity [None]
  - Mood altered [None]
  - Arrhythmia [None]
  - Irritability [None]
  - Palpitations [None]
  - Fatigue [None]
  - Headache [None]

NARRATIVE: CASE EVENT DATE: 20170830
